FAERS Safety Report 4299555-X (Version None)
Quarter: 2004Q1

REPORT INFORMATION
  Report Type: 
  Country: None (occurrence: None)
  Receive Date: 20040217
  Receipt Date: 20040217
  Transmission Date: 20041129
  Serious: Yes (Hospitalization)
  Sender: FDA-Public Use
  Company Number: None

PATIENT
  Age: 55 Year
  Sex: Female
  Weight: 65.1 kg

DRUGS (4)
  1. DOXIL [Suspect]
     Indication: OVARIAN CANCER METASTATIC
     Dosage: 80 MG OVER 1 HR IV
     Route: 042
     Dates: start: 20040205
  2. ZOFRAN [Concomitant]
  3. DEXAMETHASONE [Concomitant]
  4. COUMADIN [Concomitant]

REACTIONS (3)
  - ABDOMINAL PAIN [None]
  - CONSTIPATION [None]
  - NAUSEA [None]
